FAERS Safety Report 8842071 (Version 3)
Quarter: 2012Q4

REPORT INFORMATION
  Report Type: Report from Study
  Country: US (occurrence: US)
  Receive Date: 20121016
  Receipt Date: 20121207
  Transmission Date: 20130627
  Serious: Yes (Hospitalization, Other)
  Sender: FDA-Public Use
  Company Number: US-ABBOTT-12P-163-0994150-00

PATIENT
  Sex: Female
  Weight: 53.57 kg

DRUGS (1)
  1. HUMIRA [Suspect]
     Indication: PSORIATIC ARTHROPATHY
     Route: 058
     Dates: start: 2005, end: 20120403

REACTIONS (9)
  - Tracheostomy [Unknown]
  - Mitral valve repair [Unknown]
  - Kidney infection [Unknown]
  - Urinary tract infection [Unknown]
  - Mechanical ventilation [Unknown]
  - Atrial fibrillation [Unknown]
  - Pulmonary fibrosis [Unknown]
  - Dyspnoea [Unknown]
  - Rheumatic fever [Unknown]
